FAERS Safety Report 25150252 (Version 2)
Quarter: 2025Q2

REPORT INFORMATION
  Report Type: Other
  Country: IT (occurrence: IT)
  Receive Date: 20250402
  Receipt Date: 20250409
  Transmission Date: 20250717
  Serious: Yes (Other)
  Sender: B BRAUN
  Company Number: IT-B.Braun Medical Inc.-2174116

PATIENT
  Age: 40 Year
  Sex: Female

DRUGS (1)
  1. CEFUROXIME [Suspect]
     Active Substance: CEFUROXIME

REACTIONS (1)
  - Retinopathy [Recovering/Resolving]
